FAERS Safety Report 9476753 (Version 1)
Quarter: 2013Q3

REPORT INFORMATION
  Report Type: Spontaneous
  Country: US (occurrence: US)
  Receive Date: 20130826
  Receipt Date: 20130826
  Transmission Date: 20140515
  Serious: No
  Sender: FDA-Public Use
  Company Number: US-BRISTOL-MYERS SQUIBB COMPANY-18856476

PATIENT
  Age: 69 Year
  Sex: Male

DRUGS (3)
  1. KENALOG-40 INJ [Suspect]
  2. ATENOLOL [Concomitant]
  3. LISINOPRIL + HCTZ [Concomitant]
     Dosage: 1DF: 20 MG/25 MG

REACTIONS (4)
  - Hypotension [Unknown]
  - Asthenia [Recovered/Resolved]
  - Hyperglycaemia [Unknown]
  - Dehydration [Unknown]
